FAERS Safety Report 21489379 (Version 1)
Quarter: 2022Q4

REPORT INFORMATION
  Report Type: Report from Study
  Country: US (occurrence: US)
  Receive Date: 20221021
  Receipt Date: 20221021
  Transmission Date: 20230112
  Serious: Yes (Other)
  Sender: FDA-Public Use
  Company Number: US-ABBVIE-4169875

PATIENT
  Sex: Female

DRUGS (1)
  1. VENCLEXTA [Suspect]
     Active Substance: VENETOCLAX
     Indication: Mantle cell lymphoma
     Route: 048

REACTIONS (3)
  - Cognitive disorder [Not Recovered/Not Resolved]
  - Hot flush [Not Recovered/Not Resolved]
  - Nausea [Not Recovered/Not Resolved]
